FAERS Safety Report 19495712 (Version 1)
Quarter: 2021Q3

REPORT INFORMATION
  Report Type: Spontaneous
  Country: US (occurrence: US)
  Receive Date: 20210701
  Receipt Date: 20210701
  Transmission Date: 20211014
  Serious: Yes (Other)
  Sender: FDA-Public Use
  Company Number: None

PATIENT
  Age: 75 Year
  Sex: Male
  Weight: 103.5 kg

DRUGS (9)
  1. ATORVASTATIN [Concomitant]
     Active Substance: ATORVASTATIN
  2. ALFUZOSUIN [Concomitant]
  3. ALLOPURINOL. [Concomitant]
     Active Substance: ALLOPURINOL
  4. ENBREL [Suspect]
     Active Substance: ETANERCEPT
     Indication: PSORIATIC ARTHROPATHY
     Dosage: ?          QUANTITY:1 INJECTION(S);OTHER FREQUENCY:WEEKLY;?
     Route: 030
     Dates: start: 20210520, end: 20210624
  5. SULFASALAZINE. [Concomitant]
     Active Substance: SULFASALAZINE
  6. BRILINTA [Concomitant]
     Active Substance: TICAGRELOR
  7. METOPROLOL. [Concomitant]
     Active Substance: METOPROLOL
  8. LOSARTAN. [Concomitant]
     Active Substance: LOSARTAN
  9. DUTASTERIDE. [Concomitant]
     Active Substance: DUTASTERIDE

REACTIONS (1)
  - Skin cancer [None]

NARRATIVE: CASE EVENT DATE: 20210623
